FAERS Safety Report 24714218 (Version 2)
Quarter: 2025Q1

REPORT INFORMATION
  Report Type: Spontaneous
  Country: US (occurrence: US)
  Receive Date: 20241209
  Receipt Date: 20250225
  Transmission Date: 20250408
  Serious: No
  Sender: INCYTE
  Company Number: US-EVENT-000589

PATIENT
  Age: 69 Year

DRUGS (1)
  1. OPZELURA [Suspect]
     Active Substance: RUXOLITINIB PHOSPHATE
     Indication: Dermatitis atopic
     Dosage: 1.5% BID APPLY A THIN LAYER TO RASH ON GROIN/BUTTOCKS TWICE DAILY UNTIL RESOLVED THEN AS NEEDED

REACTIONS (1)
  - Urinary tract infection [Unknown]
